FAERS Safety Report 15777784 (Version 2)
Quarter: 2019Q1

REPORT INFORMATION
  Report Type: Spontaneous
  Country: US (occurrence: US)
  Receive Date: 20181231
  Receipt Date: 20190204
  Transmission Date: 20190417
  Serious: Yes (Other)
  Sender: FDA-Public Use
  Company Number: US-PFM-2018-15010

PATIENT

DRUGS (1)
  1. HEMANGEOL [Suspect]
     Active Substance: PROPRANOLOL HYDROCHLORIDE
     Indication: INFANTILE HAEMANGIOMA
     Dosage: 0.8 ML, EVERY 8 HOURS AND ADJUST AS PER PRESCRIBER INSTRUCTIONS
     Route: 048
     Dates: start: 201808

REACTIONS (4)
  - Pyrexia [Recovered/Resolved]
  - Off label use [Unknown]
  - Inappropriate schedule of product administration [Unknown]
  - Lung lobectomy [Recovered/Resolved]

NARRATIVE: CASE EVENT DATE: 20181108
